FAERS Safety Report 15918780 (Version 1)
Quarter: 2019Q1

REPORT INFORMATION
  Report Type: Spontaneous
  Country: US (occurrence: US)
  Receive Date: 20190205
  Receipt Date: 20190205
  Transmission Date: 20190417
  Serious: Yes (Other)
  Sender: FDA-Public Use
  Company Number: US-JNJFOC-20190136778

PATIENT
  Age: 55 Year
  Sex: Female
  Weight: 102.97 kg

DRUGS (7)
  1. METOPROLOL. [Concomitant]
     Active Substance: METOPROLOL
     Indication: BLOOD PRESSURE ABNORMAL
     Route: 065
  2. ETHINYLESTRADIOL NORETHINDRONE [Suspect]
     Active Substance: ETHINYL ESTRADIOL\NORETHINDRONE
     Indication: PRODUCT USED FOR UNKNOWN INDICATION
     Route: 048
  3. ORTHO-NOVUM 777 [Suspect]
     Active Substance: ETHINYL ESTRADIOL\NORETHINDRONE
     Indication: PRODUCT USED FOR UNKNOWN INDICATION
     Route: 048
  4. ORTHO NOVUM 1/35 [Suspect]
     Active Substance: ETHINYL ESTRADIOL\NORETHINDRONE
     Indication: PRODUCT USED FOR UNKNOWN INDICATION
     Route: 048
  5. NORVASC [Concomitant]
     Active Substance: AMLODIPINE BESYLATE
     Indication: BLOOD PRESSURE ABNORMAL
     Route: 065
  6. SELDANE [Concomitant]
     Active Substance: TERFENADINE
     Indication: OSTEOARTHRITIS
     Route: 065
  7. SELDANE [Concomitant]
     Active Substance: TERFENADINE
     Indication: RHEUMATOID ARTHRITIS
     Route: 065

REACTIONS (7)
  - Insomnia [Unknown]
  - Expired product administered [Unknown]
  - Product use issue [Unknown]
  - Uterine leiomyoma [Recovered/Resolved]
  - Hot flush [Unknown]
  - Off label use [Unknown]
  - Hyperhidrosis [Unknown]

NARRATIVE: CASE EVENT DATE: 201812
